FAERS Safety Report 8577656-5 (Version None)
Quarter: 2012Q3

REPORT INFORMATION
  Report Type: 
  Country: None (occurrence: None)
  Receive Date: 20120807
  Receipt Date: 20120726
  Transmission Date: 20120928
  Serious: Yes (Hospitalization)
  Sender: FDA-Public Use
  Company Number: CR-ELI_LILLY_AND_COMPANY-CR201207008924

PATIENT
  Age: 69 Year
  Sex: Female

DRUGS (2)
  1. LANTUS [Concomitant]
  2. EXENATIDE [Suspect]
     Dosage: 5 UG, BID
     Dates: start: 20120501

REACTIONS (3)
  - DIARRHOEA [None]
  - VOMITING [None]
  - HYPERGLYCAEMIA [None]
